FAERS Safety Report 5029019-7 (Version None)
Quarter: 2006Q2

REPORT INFORMATION
  Report Type: 
  Country: None (occurrence: None)
  Receive Date: 20060613
  Receipt Date: 20060601
  Transmission Date: 20061013
  Serious: Yes (Hospitalization)
  Sender: FDA-Public Use
  Company Number: 2006P1000249

PATIENT
  Age: 65 Year
  Sex: Male
  Weight: 65 kg

DRUGS (7)
  1. RETEPLASE (RETEPLASE) [Suspect]
     Indication: ACUTE MYOCARDIAL INFARCTION
     Dosage: IV
     Route: 042
     Dates: start: 20051212, end: 20051212
  2. REOPRO [Suspect]
     Indication: ACUTE MYOCARDIAL INFARCTION
     Dosage: IV
     Route: 042
     Dates: start: 20051212
  3. PERINDOPRIL ERUMINE [Concomitant]
  4. FLUVASTATIN [Concomitant]
  5. METOPROLOL TARTRATE [Concomitant]
  6. ACETYLSALICYLIC ACID SRT [Concomitant]
  7. CLOPIDOGREL [Concomitant]

REACTIONS (2)
  - CORONARY ARTERY STENOSIS [None]
  - PYREXIA [None]
